FAERS Safety Report 18831068 (Version 1)
Quarter: 2021Q1

REPORT INFORMATION
  Report Type: Spontaneous
  Country: JP (occurrence: JP)
  Receive Date: 20210203
  Receipt Date: 20210203
  Transmission Date: 20210419
  Serious: Yes (Other)
  Sender: FDA-Public Use
  Company Number: JP-COEPTIS PHARMACEUTICALS, INC.-COE-2021-000008

PATIENT
  Age: 73 Year
  Sex: Male
  Weight: 91.9 kg

DRUGS (14)
  1. APREPITANT. [Suspect]
     Active Substance: APREPITANT
     Indication: PROPHYLAXIS OF NAUSEA AND VOMITING
     Dosage: DAY1
     Route: 048
  2. ATORVASTATIN [Concomitant]
     Active Substance: ATORVASTATIN
     Dosage: 5 MG
     Route: 048
  3. CANDESARTAN. [Concomitant]
     Active Substance: CANDESARTAN
     Dosage: 8 MG
     Route: 048
  4. ASPIRIN. [Concomitant]
     Active Substance: ASPIRIN
     Dosage: 100 MG
     Route: 048
  5. SENNOSIDE [Concomitant]
     Active Substance: SENNOSIDES
     Dosage: 12 MG
     Route: 048
  6. DEXAMETHASONE. [Concomitant]
     Active Substance: DEXAMETHASONE
     Indication: PROPHYLAXIS OF NAUSEA AND VOMITING
     Dosage: 9.9  MG  ON  DAY  1
     Route: 042
  7. APREPITANT. [Suspect]
     Active Substance: APREPITANT
     Dosage: DAYS2 AND3
     Route: 048
  8. RANITIDINE. [Concomitant]
     Active Substance: RANITIDINE
     Dosage: 150 MG
     Route: 048
  9. CISPLATIN. [Concomitant]
     Active Substance: CISPLATIN
     Dosage: 75 MG/M2 (ON THE DAY OF ADMISSION)
  10. MAGNESIUM OXIDE. [Concomitant]
     Active Substance: MAGNESIUM OXIDE
     Dosage: 330 MG
     Route: 048
  11. GEMCITABINE. [Concomitant]
     Active Substance: GEMCITABINE
     Dosage: 1,250 MG/M2 (ON THE DAY OF ADMISSION)
  12. DEXAMETHASONE. [Concomitant]
     Active Substance: DEXAMETHASONE
     Dosage: 8.0 MG ON DAYS 2 TO 4
     Route: 048
  13. AMLODIPINE [Suspect]
     Active Substance: AMLODIPINE BESYLATE
     Indication: HYPERTENSION
     Route: 048
  14. PALONOSETRON. [Concomitant]
     Active Substance: PALONOSETRON HYDROCHLORIDE
     Indication: PROPHYLAXIS OF NAUSEA AND VOMITING
     Dosage: 0.75 MG ON DAY 1
     Route: 042

REACTIONS (2)
  - Drug interaction [Recovered/Resolved]
  - Atrioventricular block second degree [Recovered/Resolved]
